FAERS Safety Report 15313203 (Version 3)
Quarter: 2019Q1

REPORT INFORMATION
  Report Type: Spontaneous
  Country: US (occurrence: US)
  Receive Date: 20180823
  Receipt Date: 20190104
  Transmission Date: 20190417
  Serious: Yes (Death)
  Sender: FDA-Public Use
  Company Number: US-VIFOR (INTERNATIONAL) INC.-VIT-2018-07902

PATIENT
  Age: 75 Year
  Sex: Male

DRUGS (19)
  1. FLONASE [Concomitant]
     Active Substance: FLUTICASONE PROPIONATE
  2. GABAPENTIN. [Concomitant]
     Active Substance: GABAPENTIN
  3. METFORMIN HCL [Concomitant]
     Active Substance: METFORMIN HYDROCHLORIDE
  4. B12-ACTIVE [Concomitant]
  5. OFLOXACIN. [Concomitant]
     Active Substance: OFLOXACIN
  6. VELTASSA [Suspect]
     Active Substance: PATIROMER
     Route: 048
     Dates: start: 2018, end: 20181227
  7. AMLODIPINE BESYLATE. [Concomitant]
     Active Substance: AMLODIPINE BESYLATE
  8. VICTOZA [Concomitant]
     Active Substance: LIRAGLUTIDE
  9. PANTOPRAZOLE SODIUM. [Concomitant]
     Active Substance: PANTOPRAZOLE SODIUM
  10. TEMAZEPAM. [Concomitant]
     Active Substance: TEMAZEPAM
  11. HUMULIN N [Concomitant]
     Active Substance: INSULIN HUMAN
  12. NOVOLOG [Concomitant]
     Active Substance: INSULIN ASPART
  13. SYNTHROID [Concomitant]
     Active Substance: LEVOTHYROXINE SODIUM
  14. LIPITOR [Concomitant]
     Active Substance: ATORVASTATIN CALCIUM
  15. ISOSORBIDE DINITRATE. [Concomitant]
     Active Substance: ISOSORBIDE DINITRATE
  16. LASIX [Concomitant]
     Active Substance: FUROSEMIDE
  17. VELTASSA [Suspect]
     Active Substance: PATIROMER
     Indication: HYPERKALAEMIA
     Route: 048
     Dates: start: 20180420, end: 2018
  18. FLOMAX [Concomitant]
     Active Substance: TAMSULOSIN HYDROCHLORIDE
  19. CARVEDILOL. [Concomitant]
     Active Substance: CARVEDILOL

REACTIONS (3)
  - Muscle spasms [Recovered/Resolved]
  - Intraocular pressure increased [Unknown]
  - Death [Fatal]

NARRATIVE: CASE EVENT DATE: 2018
